FAERS Safety Report 16173447 (Version 1)
Quarter: 2019Q2

REPORT INFORMATION
  Report Type: Spontaneous
  Country: US (occurrence: US)
  Receive Date: 20190408
  Receipt Date: 20190408
  Transmission Date: 20190711
  Serious: Yes (Death)
  Sender: FDA-Public Use
  Company Number: None

PATIENT
  Age: 37 Year
  Sex: Male

DRUGS (18)
  1. FERROUS [Concomitant]
     Active Substance: IRON
  2. ACETYLCYT [Concomitant]
  3. MONTELUKAST [Concomitant]
     Active Substance: MONTELUKAST SODIUM
  4. NASONEX [Concomitant]
     Active Substance: MOMETASONE FUROATE
  5. POLYETH [Concomitant]
  6. SERTRALINE [Concomitant]
     Active Substance: SERTRALINE HYDROCHLORIDE
  7. ZYRTEC [Concomitant]
     Active Substance: CETIRIZINE HYDROCHLORIDE
  8. TOBRAMYCIN. [Suspect]
     Active Substance: TOBRAMYCIN
     Indication: BRONCHIECTASIS
     Route: 055
     Dates: start: 20160820
  9. DIAZEPAM. [Concomitant]
     Active Substance: DIAZEPAM
  10. DOXYCYCL [Concomitant]
  11. IPRATROPIUM [Concomitant]
     Active Substance: IPRATROPIUM
  12. LANSOPRAZOLE. [Concomitant]
     Active Substance: LANSOPRAZOLE
  13. FLUTICASONE. [Concomitant]
     Active Substance: FLUTICASONE
  14. MORPHINE [Concomitant]
     Active Substance: MORPHINE
  15. PREDNISOLONE. [Concomitant]
     Active Substance: PREDNISOLONE
  16. ALEVE [Concomitant]
     Active Substance: NAPROXEN SODIUM
  17. SYMBICORT [Concomitant]
     Active Substance: BUDESONIDE\FORMOTEROL FUMARATE DIHYDRATE
  18. ALBUTEROL. [Concomitant]
     Active Substance: ALBUTEROL

REACTIONS (1)
  - Death [None]

NARRATIVE: CASE EVENT DATE: 20190330
